FAERS Safety Report 17074826 (Version 3)
Quarter: 2024Q1

REPORT INFORMATION
  Report Type: Other
  Country: PT (occurrence: None)
  Receive Date: 20191126
  Receipt Date: 20240315
  Transmission Date: 20240410
  Serious: Yes (Hospitalization)
  Sender: FDA-Public Use
  Company Number: PT-ROCHE-2485093

PATIENT
  Age: 35 Year
  Sex: Female
  Weight: 66 kg

DRUGS (12)
  1. PERJETA [Suspect]
     Active Substance: PERTUZUMAB
     Indication: Breast cancer metastatic
     Dosage: MOST RECENT DOSE PRIOR TO AE 15/JUN/2018
     Route: 042
     Dates: start: 20180605, end: 20180605
  2. HERCEPTIN [Suspect]
     Active Substance: TRASTUZUMAB
     Indication: Breast cancer metastatic
     Dosage: MOST RECENT DOSE PRIOR TO AE 15/JAN/2019
     Route: 042
     Dates: start: 20180605, end: 20180605
  3. KADCYLA [Suspect]
     Active Substance: ADO-TRASTUZUMAB EMTANSINE
     Indication: Breast cancer metastatic
     Route: 042
     Dates: start: 20190709, end: 20190820
  4. TAXOL [Suspect]
     Active Substance: PACLITAXEL
     Indication: Breast cancer metastatic
     Dosage: MOST RECENT DOSE PRIOR TO THE EVENT: 06/NOV/2018
     Route: 042
     Dates: start: 20180605, end: 20181030
  5. METOCLOPRAMIDE [Concomitant]
     Active Substance: METOCLOPRAMIDE
     Dosage: ONGOING = CHECKED
     Dates: start: 20180612
  6. ONDANSETRON [Concomitant]
     Active Substance: ONDANSETRON
     Dosage: ONGOING = CHECKED
     Dates: start: 20180605
  7. ONDANSETRON [Concomitant]
     Active Substance: ONDANSETRON
     Dosage: ONGOING = CHECKED
     Dates: start: 20180612
  8. FOLIFER (PORTUGAL) [Concomitant]
     Dosage: ONGOING = CHECKED
  9. DEXAMETHASONE [Concomitant]
     Active Substance: DEXAMETHASONE
     Dosage: ONGOING = CHECKED
     Dates: start: 20180605
  10. ENOXAPARIN [Concomitant]
     Active Substance: ENOXAPARIN
     Indication: Pulmonary embolism
     Dosage: ONGOING = CHECKED
     Dates: start: 20190920
  11. CLEMASTINE [Concomitant]
     Active Substance: CLEMASTINE
     Dosage: ONGOING = CHECKED
     Dates: start: 20180605
  12. RANITIDINE [Concomitant]
     Active Substance: RANITIDINE
     Dosage: ONGOING = CHECKED
     Dates: start: 20180605

REACTIONS (1)
  - Pulmonary embolism [Not Recovered/Not Resolved]

NARRATIVE: CASE EVENT DATE: 20190920
